FAERS Safety Report 8399668-7 (Version None)
Quarter: 2012Q2

REPORT INFORMATION
  Report Type: 
  Country: None (occurrence: None)
  Receive Date: 20120525
  Receipt Date: 20120515
  Transmission Date: 20120825
  Serious: Yes (Hospitalization)
  Sender: FDA-Public Use
  Company Number: TIR-01124

PATIENT
  Age: 77 Year
  Sex: Female

DRUGS (4)
  1. TIROSINT [Suspect]
     Indication: BLOOD THYROID STIMULATING HORMONE ABNORMAL
     Dosage: VARYING DOSES, DAILY, ORAL
     Route: 048
     Dates: start: 20100101
  2. CYTOMEL [Concomitant]
  3. DIOVAN [Concomitant]
  4. CARDIZEM [Concomitant]

REACTIONS (7)
  - KNEE ARTHROPLASTY [None]
  - ARRHYTHMIA [None]
  - CANDIDIASIS [None]
  - THYROXINE INCREASED [None]
  - HEART RATE INCREASED [None]
  - OXYGEN SATURATION DECREASED [None]
  - AUTOIMMUNE DISORDER [None]
